FAERS Safety Report 12572245 (Version 4)
Quarter: 2016Q3

REPORT INFORMATION
  Report Type: Spontaneous
  Country: FR (occurrence: FR)
  Receive Date: 20160719
  Receipt Date: 20160805
  Transmission Date: 20161109
  Serious: Yes (Hospitalization)
  Sender: FDA-Public Use
  Company Number: FR-ABBVIE-16P-056-1680027-00

PATIENT
  Age: 64 Year
  Sex: Female

DRUGS (3)
  1. SPRYCEL [Suspect]
     Active Substance: DASATINIB
     Indication: CHRONIC MYELOID LEUKAEMIA
     Route: 048
     Dates: start: 201602
  2. IXPRIM [Concomitant]
     Active Substance: ACETAMINOPHEN\TRAMADOL HYDROCHLORIDE
     Indication: PAIN
     Route: 048
     Dates: start: 201603, end: 20160318
  3. TARKA [Suspect]
     Active Substance: TRANDOLAPRIL\VERAPAMIL HYDROCHLORIDE
     Indication: HYPERTENSION
     Route: 048
     Dates: start: 2014, end: 20160318

REACTIONS (2)
  - Pleural effusion [Recovered/Resolved]
  - Lipase increased [Recovered/Resolved]

NARRATIVE: CASE EVENT DATE: 20160318
